FAERS Safety Report 5622026-2 (Version None)
Quarter: 2008Q1

REPORT INFORMATION
  Report Type: 
  Country: None (occurrence: None)
  Receive Date: 20080211
  Receipt Date: 20080131
  Transmission Date: 20080703
  Serious: Yes (Other)
  Sender: FDA-Public Use
  Company Number: US-JNJFOC-20080200775

PATIENT
  Sex: Male
  Weight: 111.13 kg

DRUGS (1)
  1. ITRACONAZOLE [Suspect]
     Indication: ONYCHOMYCOSIS
     Route: 048

REACTIONS (4)
  - BLOOD CHOLESTEROL INCREASED [None]
  - MINERAL DEFICIENCY [None]
  - RETINAL DETACHMENT [None]
  - TOXICOLOGIC TEST ABNORMAL [None]
